FAERS Safety Report 15402791 (Version 1)
Quarter: 2018Q3

REPORT INFORMATION
  Report Type: Spontaneous
  Country: BR (occurrence: BR)
  Receive Date: 20180919
  Receipt Date: 20180919
  Transmission Date: 20181010
  Serious: Yes (Other)
  Sender: FDA-Public Use
  Company Number: BR-BAYER-2018-171636

PATIENT
  Age: 73 Year
  Sex: Male

DRUGS (2)
  1. PRIMOVIST [Suspect]
     Active Substance: GADOXETATE DISODIUM
     Indication: NUCLEAR MAGNETIC RESONANCE IMAGING LIVER
     Dosage: UNK, ONCE
     Dates: start: 20180904, end: 20180904
  2. AAS [Concomitant]
     Active Substance: ASPIRIN
     Indication: ANTIPLATELET THERAPY

REACTIONS (2)
  - Pain [Not Recovered/Not Resolved]
  - Urinary retention [Not Recovered/Not Resolved]

NARRATIVE: CASE EVENT DATE: 20180904
